FAERS Safety Report 6309206-8 (Version None)
Quarter: 2009Q3

REPORT INFORMATION
  Report Type: 
  Country: None (occurrence: None)
  Receive Date: 20090811
  Receipt Date: 20090803
  Transmission Date: 20100115
  Serious: Yes (Death)
  Sender: FDA-Public Use
  Company Number: TCI2009A00907

PATIENT
  Age: 65 Year
  Sex: Female

DRUGS (6)
  1. GEFARNATE (GEFARNATE) [Suspect]
     Indication: PROPHYLAXIS AGAINST GASTROINTESTINAL ULCER
     Dosage: 100 MG (50 MG,2 IN 1 D) PER ORAL
     Route: 048
     Dates: start: 20080523, end: 20090315
  2. RISEDRONATE SODIUM [Suspect]
     Dosage: 17.5 MG (17.5 MG,1 IN 1 WK) PER ORAL
     Route: 048
     Dates: start: 20070817, end: 20090314
  3. OSTELUC (ETODOLAC) [Suspect]
     Indication: RHEUMATOID ARTHRITIS
     Dosage: 400 MG (200 MG,2 IN 1 D) PER ORAL
     Route: 048
     Dates: start: 20050428, end: 20090315
  4. ALOSENN (ACHILLEA MILLEFOLIUM, SENNA ALEXANDRINA LEAF, SENNA ALEXANDRI [Suspect]
     Indication: CONSTIPATION
     Dosage: 1 GM (0.5 GM,2 IN 1 D) PER ORAL
     Route: 048
     Dates: start: 20050126, end: 20090314
  5. ADALAT CC [Suspect]
     Indication: HYPERTENSION
     Dosage: 20 MG (20 MG,1 IN 1 D) PER ORAL
     Route: 048
     Dates: start: 20080620, end: 20090315
  6. PREDNISOLONE [Suspect]
     Indication: RHEUMATOID ARTHRITIS
     Dosage: 7.5 MG (7.5 MG,1 IN 1 D) PER ORAL
     Route: 048
     Dates: start: 20090206, end: 20090315

REACTIONS (3)
  - CARDIAC FAILURE [None]
  - DEPRESSED LEVEL OF CONSCIOUSNESS [None]
  - MALAISE [None]
